FAERS Safety Report 9499411 (Version 1)
Quarter: 2013Q3

REPORT INFORMATION
  Report Type: Spontaneous
  Country: US (occurrence: US)
  Receive Date: 20130905
  Receipt Date: 20130905
  Transmission Date: 20140515
  Serious: Yes (Other)
  Sender: FDA-Public Use
  Company Number: US-AMGEN-USASP2013061055

PATIENT
  Age: 58 Year
  Sex: Female
  Weight: 134.24 kg

DRUGS (14)
  1. ENBREL [Suspect]
     Indication: PRODUCT USED FOR UNKNOWN INDICATION
     Dosage: UNK
     Route: 065
     Dates: start: 201209, end: 201302
  2. HUMIRA [Suspect]
     Indication: PSORIATIC ARTHROPATHY
     Dosage: 40 MG, Q2WK
     Route: 065
     Dates: start: 201112, end: 201203
  3. METFORMIN [Concomitant]
     Dosage: UNK
  4. GLYBURIDE [Concomitant]
     Dosage: UNK
  5. GABAPENTIN [Concomitant]
     Dosage: UNK
  6. SYNTHROID [Concomitant]
     Dosage: UNK
  7. AMITRIPTYLINE [Concomitant]
     Dosage: UNK
  8. MS CONTIN [Concomitant]
     Dosage: UNK
  9. PANTOPRAZOLE                       /01263204/ [Concomitant]
     Dosage: UNK
  10. CYMBALTA [Concomitant]
     Dosage: UNK
  11. VITAMIN D                          /00107901/ [Concomitant]
     Dosage: UNK
  12. SPIRONOLACTONE [Concomitant]
     Dosage: UNK
  13. LANTUS [Concomitant]
     Dosage: UNK
  14. ENALAPRIL [Concomitant]
     Dosage: UNK

REACTIONS (3)
  - Chondropathy [Recovered/Resolved]
  - Joint swelling [Unknown]
  - Psoriasis [Unknown]
